FAERS Safety Report 20124988 (Version 1)
Quarter: 2021Q4

REPORT INFORMATION
  Report Type: Spontaneous
  Country: US (occurrence: US)
  Receive Date: 20211129
  Receipt Date: 20211129
  Transmission Date: 20220304
  Serious: Yes (Death, Hospitalization, Other)
  Sender: FDA-Public Use
  Company Number: US-LUPIN PHARMACEUTICALS INC.-2021-23255

PATIENT
  Age: 76 Year
  Sex: Male

DRUGS (7)
  1. METHYLPREDNISOLONE [Suspect]
     Active Substance: METHYLPREDNISOLONE
     Indication: Organising pneumonia
     Dosage: 46 MILLIGRAM, QD
     Route: 065
  2. METHYLPREDNISOLONE [Suspect]
     Active Substance: METHYLPREDNISOLONE
     Indication: Pulmonary toxicity
     Dosage: 1000 MILLIGRAM, QD
     Route: 065
  3. METHYLPREDNISOLONE [Suspect]
     Active Substance: METHYLPREDNISOLONE
     Indication: Sarcoidosis
  4. ACYCLOVIR [Concomitant]
     Active Substance: ACYCLOVIR
     Indication: Herpes simplex meningoencephalitis
     Dosage: 10 MILLIGRAM/KILOGRAM, TID
     Route: 065
  5. CASPOFUNGIN [Concomitant]
     Active Substance: CASPOFUNGIN
     Indication: Candida infection
     Dosage: UNK
     Route: 065
  6. CASPOFUNGIN [Concomitant]
     Active Substance: CASPOFUNGIN
     Indication: Candida infection
  7. CASPOFUNGIN [Concomitant]
     Active Substance: CASPOFUNGIN
     Indication: Urinary tract candidiasis

REACTIONS (7)
  - Herpes simplex meningoencephalitis [Fatal]
  - Candida infection [Unknown]
  - Staphylococcal infection [Unknown]
  - Pneumonia [Unknown]
  - Candida infection [Unknown]
  - Urinary tract candidiasis [Unknown]
  - Off label use [None]
